FAERS Safety Report 14806215 (Version 1)
Quarter: 2018Q2

REPORT INFORMATION
  Report Type: Spontaneous
  Country: US (occurrence: US)
  Receive Date: 20180425
  Receipt Date: 20180425
  Transmission Date: 20180711
  Serious: No
  Sender: FDA-Public Use
  Company Number: US-UPSHER-SMITH LABORATORIES, LLC-2017USL00141

PATIENT
  Age: 50 Year
  Sex: Female
  Weight: 86.17 kg

DRUGS (22)
  1. QUDEXY XR [Suspect]
     Active Substance: TOPIRAMATE
     Indication: TREMOR
     Dosage: 100 MG, 1X/DAY
     Route: 048
     Dates: start: 20170721
  2. HYDROCODONE / ACETAMINOPHEN [Concomitant]
     Active Substance: ACETAMINOPHEN\HYDROCODONE
     Dosage: UNK
     Dates: start: 20170712
  3. NEUTRAL TAB [Concomitant]
     Dosage: 3-4 TABLETS 3X/DAY
  4. ATIVAN [Concomitant]
     Active Substance: LORAZEPAM
     Dosage: 1 MG, UP TO 3X/DAY AS NEEDED
  5. PREDNISONE. [Concomitant]
     Active Substance: PREDNISONE
     Dosage: 25 UNK, 1X/DAY
  6. MESTINON [Concomitant]
     Active Substance: PYRIDOSTIGMINE BROMIDE
     Dosage: 60 MG, EVERY 4 TO 6 HOURS
  7. PHOSPHORUS [Concomitant]
     Active Substance: PHOSPHORUS
     Dosage: UNK MG, UNK
  8. VITAMIN D3 [Concomitant]
     Active Substance: CHOLECALCIFEROL
     Dosage: 50000 IU, 1X/WEEK
  9. XARELTO [Concomitant]
     Active Substance: RIVAROXABAN
  10. TOPIRAMATE. [Suspect]
     Active Substance: TOPIRAMATE
     Indication: TREMOR
     Dosage: 100 MG, 1X/DAY
  11. IGG [Concomitant]
     Active Substance: HUMAN IMMUNOGLOBULIN G
     Route: 042
  12. ATENOLOL. [Concomitant]
     Active Substance: ATENOLOL
     Dosage: 25 MG, 1X/DAY AM
  13. BENADRYL [Concomitant]
     Active Substance: DIPHENHYDRAMINE HYDROCHLORIDE
     Dosage: 50 MG, 8-10X/DAY
     Route: 042
  14. TOPIRAMATE. [Suspect]
     Active Substance: TOPIRAMATE
     Indication: MIGRAINE
     Dosage: 75 MG, 1X/DAY
     Dates: start: 2009
  15. AMILORIDE [Concomitant]
     Active Substance: AMILORIDE
  16. QUDEXY XR [Suspect]
     Active Substance: TOPIRAMATE
     Indication: MIGRAINE PROPHYLAXIS
     Dosage: 25 MG, 1X/DAY
     Route: 048
     Dates: start: 20170721
  17. HEPARIN [Concomitant]
     Active Substance: HEPARIN SODIUM
  18. ZOFRAN [Concomitant]
     Active Substance: ONDANSETRON HYDROCHLORIDE
     Dosage: 4 MG, 2-3X/DAY AS NEEDED
     Route: 042
  19. SALINE [Concomitant]
     Active Substance: SODIUM CHLORIDE
     Dosage: 0.5 L, 2-3X/WEEK
  20. ZOLOFT [Concomitant]
     Active Substance: SERTRALINE HYDROCHLORIDE
     Dosage: 25 MG, 1X/DAY
  21. POTASSIUM CHLORIDE. [Concomitant]
     Active Substance: POTASSIUM CHLORIDE
     Dosage: 10 MEQ, 3X/DAY
  22. METFORMIN [Concomitant]
     Active Substance: METFORMIN HYDROCHLORIDE
     Dosage: 500 MG, 1X/DAY
     Dates: start: 20170621

REACTIONS (9)
  - Flushing [Recovered/Resolved]
  - Hot flush [Recovered/Resolved]
  - Drug administration error [Unknown]
  - Amnesia [Recovered/Resolved]
  - Tachycardia [Recovered/Resolved]
  - Cognitive disorder [Recovered/Resolved]
  - Hyperhidrosis [Recovered/Resolved]
  - Dizziness [Recovered/Resolved]
  - Gait disturbance [Recovered/Resolved]

NARRATIVE: CASE EVENT DATE: 20170721
